FAERS Safety Report 14566255 (Version 5)
Quarter: 2020Q2

REPORT INFORMATION
  Report Type: Spontaneous
  Country: US (occurrence: US)
  Receive Date: 20180223
  Receipt Date: 20200521
  Transmission Date: 20200713
  Serious: Yes (Hospitalization, Other)
  Sender: FDA-Public Use
  Company Number: US-PFIZER INC-2018074819

PATIENT
  Age: 81 Year
  Sex: Female
  Weight: 57.82 kg

DRUGS (3)
  1. LYRICA [Suspect]
     Active Substance: PREGABALIN
     Indication: FIBROMYALGIA
     Dosage: 50 MG, UNK
     Dates: start: 20180125
  2. LYRICA [Suspect]
     Active Substance: PREGABALIN
     Indication: NEURALGIA
     Dosage: 100 MG, 3X/DAY
     Route: 048
  3. LYRICA [Suspect]
     Active Substance: PREGABALIN
     Dosage: 200 MG, 3X/DAY
     Route: 048

REACTIONS (5)
  - Pneumonia [Recovering/Resolving]
  - Asthenia [Recovering/Resolving]
  - Malaise [Unknown]
  - Sepsis [Recovering/Resolving]
  - Peripheral swelling [Unknown]

NARRATIVE: CASE EVENT DATE: 20180315
